FAERS Safety Report 5687727-9 (Version None)
Quarter: 2008Q1

REPORT INFORMATION
  Report Type: 
  Country: None (occurrence: None)
  Receive Date: 20080328
  Receipt Date: 20061113
  Transmission Date: 20080703
  Serious: No
  Sender: FDA-Public Use
  Company Number: US-BAYER-US-2006-035442

PATIENT
  Age: 36 Year
  Sex: Female

DRUGS (1)
  1. MIRENA [Suspect]
     Indication: CONTRACEPTION
     Route: 015
     Dates: start: 20060816, end: 20061108

REACTIONS (4)
  - DISCOMFORT [None]
  - DYSPAREUNIA [None]
  - GENITAL HAEMORRHAGE [None]
  - IUCD COMPLICATION [None]
